FAERS Safety Report 15422502 (Version 34)
Quarter: 2022Q4

REPORT INFORMATION
  Report Type: Spontaneous
  Country: CA (occurrence: CA)
  Receive Date: 20180925
  Receipt Date: 20221125
  Transmission Date: 20230112
  Serious: Yes (Other)
  Sender: FDA-Public Use
  Company Number: CA-CELLTRION INC.-2017CA003346

PATIENT

DRUGS (25)
  1. INFLECTRA [Suspect]
     Active Substance: INFLIXIMAB-DYYB
     Indication: Rheumatoid arthritis
     Dosage: 600 MG, AT 2, 6, THEN EVERY 8 WEEKS
     Route: 042
     Dates: start: 20161006, end: 20180212
  2. INFLECTRA [Suspect]
     Active Substance: INFLIXIMAB-DYYB
     Indication: Crohn^s disease
     Dosage: 600 MG, THEN EVERY 6 WEEKS
     Route: 042
     Dates: start: 20161006, end: 20180212
  3. INFLECTRA [Suspect]
     Active Substance: INFLIXIMAB-DYYB
     Dosage: 855 MG, EVERY 6 WEEKS
     Route: 042
     Dates: start: 20180222
  4. INFLECTRA [Suspect]
     Active Substance: INFLIXIMAB-DYYB
     Dosage: 855 MG, EVERY 6 WEEKS
     Route: 042
     Dates: start: 20181022
  5. INFLECTRA [Suspect]
     Active Substance: INFLIXIMAB-DYYB
     Dosage: 7.5 MG/KG (7500 MG/KG), EVERY 6 WEEKS
     Route: 042
     Dates: start: 20181203, end: 20190409
  6. INFLECTRA [Suspect]
     Active Substance: INFLIXIMAB-DYYB
     Dosage: UNK
     Route: 042
     Dates: start: 20190409
  7. INFLECTRA [Suspect]
     Active Substance: INFLIXIMAB-DYYB
     Dosage: 5 MG/KG (855MG), EVERY 4 WEEKS
     Route: 042
     Dates: start: 20190521
  8. INFLECTRA [Suspect]
     Active Substance: INFLIXIMAB-DYYB
     Dosage: 885 MG EVERY 4 WEEKS
     Route: 042
     Dates: start: 20190521, end: 20200407
  9. INFLECTRA [Suspect]
     Active Substance: INFLIXIMAB-DYYB
     Dosage: 7.5 MG/KG, EVERY 6 WEEKS
     Route: 042
     Dates: start: 20200203
  10. INFLECTRA [Suspect]
     Active Substance: INFLIXIMAB-DYYB
     Dosage: 7.5 MG/KG, EVERY 6 WEEKS
     Route: 042
     Dates: start: 20200225
  11. INFLECTRA [Suspect]
     Active Substance: INFLIXIMAB-DYYB
     Dosage: 1140 MG,  6 WEEKS AFTER LAST INFUSION
     Route: 042
     Dates: start: 20200407
  12. INFLECTRA [Suspect]
     Active Substance: INFLIXIMAB-DYYB
     Dosage: 1140 MG,  EVERY 4 WEEKS
     Route: 042
     Dates: start: 20200504
  13. INFLECTRA [Suspect]
     Active Substance: INFLIXIMAB-DYYB
     Dosage: 885 MG EVERY 4 WEEKS
     Route: 042
     Dates: start: 20200928
  14. INFLECTRA [Suspect]
     Active Substance: INFLIXIMAB-DYYB
     Dosage: 1140 MG,  EVERY 4 WEEKS
     Route: 042
     Dates: start: 20201124
  15. INFLECTRA [Suspect]
     Active Substance: INFLIXIMAB-DYYB
     Dosage: 1140 MG,  EVERY 4 WEEKS
     Route: 042
     Dates: start: 20210317
  16. INFLECTRA [Suspect]
     Active Substance: INFLIXIMAB-DYYB
     Dosage: 1140 MG,  EVERY 4 WEEKS
     Route: 042
     Dates: start: 20210504
  17. INFLECTRA [Suspect]
     Active Substance: INFLIXIMAB-DYYB
     Dosage: 1140 MG, EVERY 4 WEEKS
     Route: 042
     Dates: start: 20210623
  18. INFLECTRA [Suspect]
     Active Substance: INFLIXIMAB-DYYB
     Dosage: 1140 MG, EVERY 4 WEEKS
     Route: 042
     Dates: start: 20220503
  19. INFLECTRA [Suspect]
     Active Substance: INFLIXIMAB-DYYB
     Dosage: 1140 MG, EVERY 4 WEEKS
     Route: 042
     Dates: start: 20220920
  20. INFLECTRA [Suspect]
     Active Substance: INFLIXIMAB-DYYB
     Dosage: 1140 MG, EVERY 4 WEEKS
     Route: 042
     Dates: start: 20221116
  21. BISOPROLOL [Concomitant]
     Active Substance: BISOPROLOL
     Dosage: 1 DF, DOSAGE NOT AVAILABLE
     Route: 065
  22. FOLIC ACID [Concomitant]
     Active Substance: FOLIC ACID
     Dosage: 5 MG, UNK
     Route: 065
  23. METHOTREXATE [Concomitant]
     Active Substance: METHOTREXATE
     Dosage: 25 MG (10 TABLETS OF 2.5MG), WEEKLY
     Route: 065
  24. SULFASALAZINE [Concomitant]
     Active Substance: SULFASALAZINE
     Dosage: 1000 MG, 2X/DAY
     Route: 065
  25. COMIRNATY [Concomitant]
     Active Substance: TOZINAMERAN
     Indication: COVID-19 immunisation
     Dosage: DOSE 3 (BOOSTER), SINGLE
     Dates: start: 20220127, end: 20220127

REACTIONS (22)
  - Carpal tunnel syndrome [Unknown]
  - Condition aggravated [Not Recovered/Not Resolved]
  - Type 2 diabetes mellitus [Unknown]
  - Drug ineffective [Unknown]
  - Off label use [Unknown]
  - Incorrect dose administered [Unknown]
  - Inappropriate schedule of product administration [Unknown]
  - Cystitis [Unknown]
  - Otitis externa [Unknown]
  - Ear infection [Unknown]
  - Skin infection [Unknown]
  - Weight fluctuation [Not Recovered/Not Resolved]
  - Oropharyngeal pain [Unknown]
  - Drug level above therapeutic [Unknown]
  - Influenza like illness [Not Recovered/Not Resolved]
  - Cough [Not Recovered/Not Resolved]
  - Malaise [Recovered/Resolved]
  - Sinusitis [Recovering/Resolving]
  - Fatigue [Not Recovered/Not Resolved]
  - Headache [Recovered/Resolved]
  - Vision blurred [Recovered/Resolved]
  - Thirst [Recovered/Resolved]

NARRATIVE: CASE EVENT DATE: 20180222
